FAERS Safety Report 26126519 (Version 1)
Quarter: 2025Q4

REPORT INFORMATION
  Report Type: Spontaneous
  Country: US (occurrence: None)
  Receive Date: 20251205
  Receipt Date: 20251205
  Transmission Date: 20260119
  Serious: No
  Sender: FDA-CTU
  Company Number: None

PATIENT
  Age: 29 Year
  Sex: Female
  Weight: 164.7 kg

DRUGS (1)
  1. COSENTYX [Suspect]
     Active Substance: SECUKINUMAB
     Indication: Hidradenitis
     Dosage: 150 MG/MML EVERY 4 WEEKS SUBCUTANEOUS?
     Route: 058
     Dates: start: 20250408

REACTIONS (2)
  - Condition aggravated [None]
  - Hidradenitis [None]

NARRATIVE: CASE EVENT DATE: 20251202
